FAERS Safety Report 8436666-9 (Version None)
Quarter: 2012Q2

REPORT INFORMATION
  Report Type: 
  Country: None (occurrence: None)
  Receive Date: 20120614
  Receipt Date: 20120605
  Transmission Date: 20120825
  Serious: Yes (Hospitalization)
  Sender: FDA-Public Use
  Company Number: RU-JNJFOC-20120603636

PATIENT
  Age: 24 Year
  Sex: Female

DRUGS (2)
  1. REMICADE [Suspect]
     Indication: COLITIS ULCERATIVE
     Dosage: FREQUENCY AT 0-2-6 WEEKS
     Route: 042
     Dates: start: 20120301
  2. STEROIDS NOS [Concomitant]
     Indication: COLITIS ULCERATIVE
     Route: 065
     Dates: start: 20120201

REACTIONS (1)
  - PULMONARY TUBERCULOSIS [None]
